FAERS Safety Report 8353328-7 (Version None)
Quarter: 2012Q2

REPORT INFORMATION
  Report Type: 
  Country: None (occurrence: None)
  Receive Date: 20120511
  Receipt Date: 20120508
  Transmission Date: 20120825
  Serious: Yes (Disabling, Other)
  Sender: FDA-Public Use
  Company Number: PHHY2010US69025

PATIENT
  Sex: Female
  Weight: 78.005 kg

DRUGS (5)
  1. LANTUS [Concomitant]
     Dosage: UNK UKN, UNK
  2. INSULIN [Concomitant]
     Dosage: 4 OR 5 TIMES DAILY
  3. EXTAVIA [Suspect]
     Dosage: 0.625 MG, QOD
     Route: 058
     Dates: end: 20110101
  4. EXTAVIA [Suspect]
     Indication: MULTIPLE SCLEROSIS
     Dosage: 0.25 MG, UNK
     Route: 058
  5. EXTAVIA [Suspect]
     Dosage: 0.0625 MG, QOD
     Route: 058
     Dates: start: 20110914

REACTIONS (12)
  - BURNING SENSATION [None]
  - INSOMNIA [None]
  - MULTIPLE SCLEROSIS RELAPSE [None]
  - HEADACHE [None]
  - MUSCLE SPASMS [None]
  - GAIT DISTURBANCE [None]
  - CONTUSION [None]
  - ASTHENIA [None]
  - FATIGUE [None]
  - PAIN IN EXTREMITY [None]
  - NAUSEA [None]
  - MALAISE [None]
